FAERS Safety Report 11837852 (Version 1)
Quarter: 2015Q4

REPORT INFORMATION
  Report Type: Spontaneous
  Country: SE (occurrence: SE)
  Receive Date: 20151215
  Receipt Date: 20151215
  Transmission Date: 20160305
  Serious: Yes (Hospitalization, Disabling)
  Sender: FDA-Public Use
  Company Number: SE-TEVA-615799ACC

PATIENT
  Age: 81 Year
  Sex: Female

DRUGS (2)
  1. OXASCAND [Suspect]
     Active Substance: OXAZEPAM
     Dosage: DRYGT EN VECKAS BEHANDLING OCH SEDAN UTTRAPPNING.
     Dates: start: 20151004
  2. OXASCAND [Suspect]
     Active Substance: OXAZEPAM
     Dates: start: 20151105, end: 20151106

REACTIONS (4)
  - Fear [Not Recovered/Not Resolved]
  - Confusional state [Not Recovered/Not Resolved]
  - Personality change [Not Recovered/Not Resolved]
  - Amnesia [Not Recovered/Not Resolved]

NARRATIVE: CASE EVENT DATE: 20151007
